FAERS Safety Report 8823730 (Version 2)
Quarter: 2012Q4

REPORT INFORMATION
  Report Type: Report from Study
  Country: US (occurrence: US)
  Receive Date: 20121003
  Receipt Date: 20121024
  Transmission Date: 20130627
  Serious: Yes (Other)
  Sender: FDA-Public Use
  Company Number: US-CELGENEUS-163-21880-12070071

PATIENT
  Age: 65 Year
  Sex: Female
  Weight: 56.2 kg

DRUGS (20)
  1. REVLIMID [Suspect]
     Indication: MULTIPLE MYELOMA
     Dosage: 10 Milligram
     Route: 048
     Dates: start: 20111017
  2. REVLIMID [Suspect]
     Dosage: 10 Milligram
     Route: 048
     Dates: start: 20111212, end: 20120108
  3. REVLIMID [Suspect]
     Dosage: 15 Milligram
     Route: 048
     Dates: start: 20120109
  4. LEVAQUIN [Concomitant]
     Indication: DRUG USE FOR UNKNOWN INDICATION
     Dosage: 500 Milligram
     Route: 048
     Dates: start: 20110328
  5. LEVAQUIN [Concomitant]
     Dosage: 500 Milligram
     Route: 048
     Dates: start: 20120625
  6. TYLENOL [Concomitant]
     Indication: GENERALIZED ACHING
     Dosage: 24 Tablet
     Route: 048
     Dates: start: 201206
  7. ZOLPIDEM TARTRATE [Concomitant]
     Indication: DRUG USE FOR UNKNOWN INDICATION
     Dosage: 10 Milligram
     Route: 048
  8. VALTREX [Concomitant]
     Indication: DRUG USE FOR UNKNOWN INDICATION
     Dosage: 1000 Milligram
     Route: 048
     Dates: start: 20110328
  9. FISH OIL [Concomitant]
     Indication: DRUG USE FOR UNKNOWN INDICATION
     Dosage: 2000 Milligram
     Route: 048
  10. PROBIOTIC-AACIDOPHILUS [Concomitant]
     Indication: DRUG USE FOR UNKNOWN INDICATION
     Dosage: 300-250 million cell-mg
     Route: 048
  11. EFFEXOR XR [Concomitant]
     Indication: DRUG USE FOR UNKNOWN INDICATION
     Dosage: 37.5 Milligram
     Route: 048
     Dates: start: 20110601
  12. NEXIUM [Concomitant]
     Indication: DRUG USE FOR UNKNOWN INDICATION
     Dosage: 40 Milligram
     Route: 048
  13. VITAMIN C [Concomitant]
     Indication: DRUG USE FOR UNKNOWN INDICATION
     Dosage: 1000 Milligram
     Route: 048
     Dates: start: 20110601
  14. CALCIUM [Concomitant]
     Indication: DRUG USE FOR UNKNOWN INDICATION
     Dosage: 600 Milligram
     Route: 048
     Dates: start: 20110601
  15. VITAMIN D3 [Concomitant]
     Indication: DRUG USE FOR UNKNOWN INDICATION
     Dosage: 2000 unit
     Route: 048
     Dates: start: 20110728
  16. ZANTAC [Concomitant]
     Indication: DRUG USE FOR UNKNOWN INDICATION
     Dosage: 300 Milligram
     Route: 048
     Dates: start: 20110601
  17. SUCRALFATE [Concomitant]
     Indication: DRUG USE FOR UNKNOWN INDICATION
     Dosage: 40 milliliter
     Route: 048
  18. ZOMETA [Concomitant]
     Indication: DRUG USE FOR UNKNOWN INDICATION
     Dosage: 4 Milligram
     Route: 041
     Dates: start: 20110214
  19. ASPIRIN [Concomitant]
     Indication: DRUG USE FOR UNKNOWN INDICATION
     Dosage: 81 Milligram
     Route: 041
     Dates: start: 20111017
  20. BROMDAY [Concomitant]
     Indication: DRUG USE FOR UNKNOWN INDICATION
     Dosage: 1.8 Percent
     Route: 047
     Dates: start: 20111017

REACTIONS (2)
  - Malignant melanoma [Recovered/Resolved]
  - Pneumonia [Recovered/Resolved]
